FAERS Safety Report 8566559-8 (Version None)
Quarter: 2012Q3

REPORT INFORMATION
  Report Type: 
  Country: None (occurrence: None)
  Receive Date: 20120803
  Receipt Date: 20111116
  Transmission Date: 20120928
  Serious: No
  Sender: FDA-Public Use
  Company Number: US-ABBOTT-11P-163-0874543-00

PATIENT
  Sex: Female
  Weight: 74.91 kg

DRUGS (5)
  1. M.V.I. [Concomitant]
     Indication: PRODUCT USED FOR UNKNOWN INDICATION
  2. ASPIRIN [Concomitant]
     Indication: PRODUCT USED FOR UNKNOWN INDICATION
     Route: 048
  3. GOAT WHEY [Concomitant]
     Indication: PRODUCT USED FOR UNKNOWN INDICATION
  4. AAZOR [Concomitant]
     Indication: PRODUCT USED FOR UNKNOWN INDICATION
     Dosage: DAILY
     Route: 048
  5. NIASPAN [Suspect]
     Indication: LOW DENSITY LIPOPROTEIN INCREASED
     Route: 048
     Dates: start: 20110501

REACTIONS (4)
  - HEADACHE [None]
  - SINUSITIS [None]
  - SINUS HEADACHE [None]
  - HYPOAESTHESIA EYE [None]
